FAERS Safety Report 6731286-6 (Version None)
Quarter: 2010Q2

REPORT INFORMATION
  Report Type: 
  Country: None (occurrence: None)
  Receive Date: 20100517
  Receipt Date: 20100517
  Transmission Date: 20101027
  Serious: No
  Sender: FDA-Public Use
  Company Number: None

PATIENT
  Sex: Male
  Weight: 77.1115 kg

DRUGS (7)
  1. CIPROFLOXACIN [Suspect]
     Indication: PROSTATIC SPECIFIC ANTIGEN INCREASED
     Dosage: 500 MG BID PO
     Route: 048
     Dates: start: 20090708, end: 20090806
  2. CIPROFLOXACIN [Suspect]
     Indication: PROSTATITIS
     Dosage: 500 MG BID PO
     Route: 048
     Dates: start: 20090708, end: 20090806
  3. ONE A DAY VITAMINS [Concomitant]
  4. MAGNESIUM SUPPLEMENT [Concomitant]
  5. FISH OIL SUPPLEMENT [Concomitant]
  6. VITAMIN D [Concomitant]
  7. FINASTERIDE [Concomitant]

REACTIONS (1)
  - MUSCULOSKELETAL PAIN [None]
